FAERS Safety Report 11037771 (Version 1)
Quarter: 2015Q2

REPORT INFORMATION
  Report Type: Spontaneous
  Country: US (occurrence: None)
  Receive Date: 20150415
  Receipt Date: 20150415
  Transmission Date: 20150821
  Serious: Yes (Hospitalization)
  Sender: FDA-Public Use
  Company Number: None

PATIENT
  Age: 83 Year
  Sex: Female
  Weight: 60.63 kg

DRUGS (1)
  1. BEVACIZUMAB (RHUMAB VEGF) [Suspect]
     Active Substance: BEVACIZUMAB
     Dates: end: 20150316

REACTIONS (5)
  - Dizziness [None]
  - Syncope [None]
  - Presyncope [None]
  - Dizziness postural [None]
  - Dehydration [None]

NARRATIVE: CASE EVENT DATE: 20150406
